FAERS Safety Report 7170778-5 (Version None)
Quarter: 2010Q4

REPORT INFORMATION
  Report Type: 
  Country: None (occurrence: None)
  Receive Date: 20101214
  Receipt Date: 20101214
  Transmission Date: 20110411
  Serious: No
  Sender: FDA-Public Use
  Company Number: None

PATIENT
  Age: 75 Year
  Sex: Male

DRUGS (7)
  1. LETAIRIS [Suspect]
     Indication: PULMONARY HYPERTENSION
     Dosage: 10MG DAILY ORALLY
     Route: 048
     Dates: start: 20100101, end: 20101101
  2. ADCIRCA [Concomitant]
  3. CLONIDINE [Concomitant]
  4. SPIRONOLACTONE [Concomitant]
  5. SIMVASTATIN [Concomitant]
  6. METOPROLOL [Concomitant]
  7. WARFARIN SODIUM [Concomitant]

REACTIONS (5)
  - CARDIAC FAILURE CONGESTIVE [None]
  - CONDITION AGGRAVATED [None]
  - DYSPNOEA [None]
  - OEDEMA [None]
  - PULMONARY OEDEMA [None]
